FAERS Safety Report 6234360-6 (Version None)
Quarter: 2009Q2

REPORT INFORMATION
  Report Type: 
  Country: None (occurrence: None)
  Receive Date: 20090616
  Receipt Date: 20090616
  Transmission Date: 20091009
  Serious: Yes (Hospitalization, Other)
  Sender: FDA-Public Use
  Company Number: None

PATIENT
  Age: 28 Year
  Sex: Female
  Weight: 58.9676 kg

DRUGS (1)
  1. BUPROPION HCL [Suspect]
     Indication: BIPOLAR II DISORDER
     Dosage: 300 MG PER DAY PO
     Route: 048
     Dates: start: 20070601, end: 20071015

REACTIONS (3)
  - ANXIETY [None]
  - DEPRESSION SUICIDAL [None]
  - PRODUCT SUBSTITUTION ISSUE [None]
